FAERS Safety Report 5980208-4 (Version None)
Quarter: 2008Q4

REPORT INFORMATION
  Report Type: 
  Country: None (occurrence: None)
  Receive Date: 20081202
  Receipt Date: 20081202
  Transmission Date: 20090506
  Serious: Yes (Other)
  Sender: FDA-Public Use
  Company Number: None

PATIENT
  Age: 61 Year
  Sex: Female
  Weight: 74.3899 kg

DRUGS (1)
  1. AZITHROMYCIN [Suspect]
     Indication: SINUSITIS
     Dosage: 2 TABLETS FIRST DAY PO ; 1 TABLET DAILY X 2 DAYS PO
     Route: 048
     Dates: start: 20081121, end: 20081123

REACTIONS (2)
  - CHEST DISCOMFORT [None]
  - CHEST PAIN [None]
